FAERS Safety Report 16963449 (Version 1)
Quarter: 2019Q4

REPORT INFORMATION
  Report Type: Spontaneous
  Country: US (occurrence: US)
  Receive Date: 20190907
  Receipt Date: 20190907
  Transmission Date: 20200122
  Serious: Yes (Hospitalization)
  Sender: FDA-Public Use
  Company Number: None

PATIENT
  Age: 19 Year
  Sex: Female
  Weight: 68.9 kg

DRUGS (2)
  1. METHOTREXATE. [Suspect]
     Active Substance: METHOTREXATE
     Dates: end: 20190827
  2. MERCAPTOPURINE. [Suspect]
     Active Substance: MERCAPTOPURINE

REACTIONS (12)
  - Nausea [None]
  - Dyspnoea [None]
  - Platelet adhesiveness decreased [None]
  - Dizziness [None]
  - Jaundice [None]
  - Ocular icterus [None]
  - Leukopenia [None]
  - Cytopenia [None]
  - Vomiting [None]
  - Cholecystitis [None]
  - Pancytopenia [None]
  - Anaemia [None]

NARRATIVE: CASE EVENT DATE: 20190901
